FAERS Safety Report 21580127 (Version 1)
Quarter: 2022Q4

REPORT INFORMATION
  Report Type: Spontaneous
  Country: JP (occurrence: JP)
  Receive Date: 20221110
  Receipt Date: 20221110
  Transmission Date: 20230113
  Serious: Yes (Hospitalization, Other)
  Sender: FDA-Public Use
  Company Number: JP-PAIPHARMA-2022-JP-000486

PATIENT
  Age: 74 Year
  Sex: Male

DRUGS (1)
  1. PREDNISOLONE SODIUM PHOSPHATE [Suspect]
     Active Substance: PREDNISOLONE SODIUM PHOSPHATE
     Indication: Asthma
     Dosage: 10 MG

REACTIONS (4)
  - Non-alcoholic steatohepatitis [Unknown]
  - Diabetes mellitus [Unknown]
  - Adrenal insufficiency [Unknown]
  - Immunosuppression [Unknown]
